FAERS Safety Report 8001304-6 (Version None)
Quarter: 2011Q4

REPORT INFORMATION
  Report Type: 
  Country: None (occurrence: None)
  Receive Date: 20111222
  Receipt Date: 20111220
  Transmission Date: 20120403
  Serious: Yes (Hospitalization)
  Sender: FDA-Public Use
  Company Number: US-PFIZER INC-2011309265

PATIENT
  Sex: Female
  Weight: 66.213 kg

DRUGS (4)
  1. CYMBALTA [Concomitant]
     Dosage: UNK
  2. VICODIN [Concomitant]
     Dosage: UNK
  3. FLECTOR [Suspect]
     Indication: PAIN
     Dosage: UNK
     Dates: start: 20111001
  4. XANAX [Concomitant]
     Dosage: UNK

REACTIONS (3)
  - PRODUCT SIZE ISSUE [None]
  - DRUG INEFFECTIVE [None]
  - SPINAL CORD INJURY [None]
